FAERS Safety Report 8541819-5 (Version None)
Quarter: 2012Q3

REPORT INFORMATION
  Report Type: 
  Country: None (occurrence: None)
  Receive Date: 20120726
  Receipt Date: 20111005
  Transmission Date: 20120928
  Serious: No
  Sender: FDA-Public Use
  Company Number: US-ASTRAZENECA-2011SE53726

PATIENT
  Age: 51 Year
  Sex: Male
  Weight: 91.2 kg

DRUGS (6)
  1. SYMBOLTA [Concomitant]
  2. SEROQUEL [Suspect]
     Dosage: SPLIT THE TABLET IN HALF
     Route: 048
  3. SEROQUEL [Suspect]
     Indication: BIPOLAR DISORDER
     Route: 048
     Dates: start: 20020101
  4. LEVOTHROID [Concomitant]
  5. LORAZEPAM [Concomitant]
     Indication: PANIC ATTACK
  6. LISINOPRIL [Concomitant]
     Indication: BLOOD PRESSURE ABNORMAL

REACTIONS (5)
  - BLOOD PRESSURE INCREASED [None]
  - THERAPEUTIC RESPONSE INCREASED [None]
  - SOMNOLENCE [None]
  - WRONG TECHNIQUE IN DRUG USAGE PROCESS [None]
  - ANXIETY [None]
